FAERS Safety Report 8009454-5 (Version None)
Quarter: 2011Q4

REPORT INFORMATION
  Report Type: 
  Country: None (occurrence: None)
  Receive Date: 20111227
  Receipt Date: 20111213
  Transmission Date: 20120403
  Serious: Yes (Other)
  Sender: FDA-Public Use
  Company Number: MX-SANOFI-AVENTIS-2011SA081884

PATIENT
  Age: 53 Year
  Sex: Male

DRUGS (3)
  1. LANTUS [Suspect]
     Indication: DIABETES MELLITUS
     Route: 058
     Dates: start: 20080101, end: 20110601
  2. LEVOTHYROXINE SODIUM [Concomitant]
     Indication: HYPOTHYROIDISM
     Route: 048
  3. LANTUS [Suspect]
     Dosage: 20 IU IN MORNING,20 IU IN AFTERNOON AND 10 IU AT NIGHT
     Route: 058
     Dates: start: 20110601

REACTIONS (6)
  - OESOPHAGITIS [None]
  - RETINOPATHY [None]
  - HYPERGLYCAEMIA [None]
  - NEUROPATHY PERIPHERAL [None]
  - VISION BLURRED [None]
  - DRUG ADMINISTRATION ERROR [None]
